FAERS Safety Report 8694196 (Version 2)
Quarter: 2012Q4

REPORT INFORMATION
  Report Type: 
  Country: CA (occurrence: CA)
  Receive Date: 20120731
  Receipt Date: 20121012
  Transmission Date: 20130627
  Serious: Yes (Death)
  Sender: FDA-Public Use
  Company Number: CA-SANOFI-AVENTIS-2012SA051684

PATIENT
  Age: 80 Year
  Sex: Female
  Weight: 60 kg

DRUGS (2)
  1. ENOXAPARIN SODIUM [Suspect]
     Indication: PULMONARY EMBOLISM
     Dosage: The exact therapy duration was 4 days 2 hours
     Route: 058
     Dates: start: 2010, end: 2010
  2. WARFARIN [Suspect]
     Indication: PULMONARY EMBOLISM
     Dosage: INR adjusted.
     Route: 048
     Dates: start: 2010, end: 2011

REACTIONS (1)
  - Death [Fatal]
